FAERS Safety Report 16371314 (Version 1)
Quarter: 2019Q2

REPORT INFORMATION
  Report Type: Spontaneous
  Country: US (occurrence: US)
  Receive Date: 20190423
  Receipt Date: 20190423
  Transmission Date: 20190711
  Serious: Yes (Hospitalization)
  Sender: FDA-Public Use
  Company Number: None

PATIENT
  Age: 20 Year
  Sex: Male
  Weight: 40 kg

DRUGS (1)
  1. BLEOMYCIN [Suspect]
     Active Substance: BLEOMYCIN SULFATE
     Dosage: ?          OTHER DOSE:50 UNIT;?
     Dates: end: 20190419

REACTIONS (4)
  - Blood pressure decreased [None]
  - Pyrexia [None]
  - Hypertension [None]
  - Tachycardia [None]

NARRATIVE: CASE EVENT DATE: 20190418
